FAERS Safety Report 21244689 (Version 2)
Quarter: 2022Q3

REPORT INFORMATION
  Report Type: Spontaneous
  Country: US (occurrence: None)
  Receive Date: 20220823
  Receipt Date: 20220908
  Transmission Date: 20221027
  Serious: Yes (Hospitalization)
  Sender: FDA-Public Use
  Company Number: 2022A287625

PATIENT
  Age: 26971 Day
  Sex: Female
  Weight: 50.8 kg

DRUGS (1)
  1. TAGRISSO [Suspect]
     Active Substance: OSIMERTINIB
     Indication: Lung carcinoma cell type unspecified stage IV
     Route: 048
     Dates: start: 20220721

REACTIONS (8)
  - Myocardial infarction [Unknown]
  - Malignant neoplasm progression [Unknown]
  - Syncope [Unknown]
  - Drug intolerance [Unknown]
  - Dizziness [Unknown]
  - Hypotension [Unknown]
  - Malaise [Unknown]
  - Cardiac disorder [Unknown]

NARRATIVE: CASE EVENT DATE: 20220721
